FAERS Safety Report 7569593-X (Version None)
Quarter: 2011Q2

REPORT INFORMATION
  Report Type: 
  Country: None (occurrence: None)
  Receive Date: 20110621
  Receipt Date: 20110621
  Transmission Date: 20111010
  Serious: No
  Sender: FDA-Public Use
  Company Number: None

PATIENT
  Age: 31 Year
  Sex: Male
  Weight: 86.637 kg

DRUGS (1)
  1. HUMIRA [Suspect]
     Dosage: (ONE DOSE)
     Dates: start: 20110324

REACTIONS (6)
  - NECK PAIN [None]
  - ARTHRALGIA [None]
  - BACK PAIN [None]
  - PYREXIA [None]
  - SERUM SICKNESS [None]
  - MUSCULOSKELETAL PAIN [None]
